FAERS Safety Report 12941620 (Version 1)
Quarter: 2016Q4

REPORT INFORMATION
  Report Type: Spontaneous
  Country: JP (occurrence: JP)
  Receive Date: 20161115
  Receipt Date: 20161115
  Transmission Date: 20170207
  Serious: Yes (Hospitalization)
  Sender: FDA-Public Use
  Company Number: JP-JNJFOC-20161112875

PATIENT
  Age: 64 Year
  Sex: Male
  Weight: 69 kg

DRUGS (3)
  1. CANAGLU [Suspect]
     Active Substance: CANAGLIFLOZIN
     Indication: TYPE 2 DIABETES MELLITUS
     Route: 048
     Dates: start: 20160802, end: 20160829
  2. FEBURIC [Concomitant]
     Active Substance: FEBUXOSTAT
     Route: 048
     Dates: start: 20160802
  3. AZILVA [Concomitant]
     Active Substance: AZILSARTAN KAMEDOXOMIL
     Route: 048
     Dates: start: 20160802

REACTIONS (1)
  - Renal failure [Unknown]

NARRATIVE: CASE EVENT DATE: 20160820
